FAERS Safety Report 12114532 (Version 1)
Quarter: 2016Q1

REPORT INFORMATION
  Report Type: Report from Study
  Country: JP (occurrence: JP)
  Receive Date: 20160225
  Receipt Date: 20160225
  Transmission Date: 20160526
  Serious: Yes (Other)
  Sender: FDA-Public Use
  Company Number: JP-VIIV HEALTHCARE LIMITED-JP2015JPN133884

PATIENT
  Sex: Male

DRUGS (12)
  1. SAMITREL [Concomitant]
     Active Substance: ATOVAQUONE
     Indication: ANTIVIRAL PROPHYLAXIS
     Dosage: 1500 MG, QD
     Dates: start: 20140818, end: 20140916
  2. DOXIL [Concomitant]
     Active Substance: DOXORUBICIN HYDROCHLORIDE
     Dosage: 33 MG, QD
     Dates: start: 20140917, end: 20140917
  3. DOXIL [Concomitant]
     Active Substance: DOXORUBICIN HYDROCHLORIDE
     Indication: KAPOSI^S SARCOMA
     Dosage: 32 MG, QD
     Dates: start: 20140804, end: 20140804
  4. ONDANSETRON HYDROCHLORIDE HYDRATE [Concomitant]
     Dosage: 4 MG, QD
     Dates: start: 20140825, end: 20140825
  5. DOXIL [Concomitant]
     Active Substance: DOXORUBICIN HYDROCHLORIDE
     Dosage: 33 MG, QD
     Dates: start: 20140825, end: 20140825
  6. DOLUTEGRAVIR [Suspect]
     Active Substance: DOLUTEGRAVIR
     Indication: HIV INFECTION
     Dosage: UNK
     Route: 048
     Dates: start: 20140828
  7. SULFAMETHOXAZOLE AND TRIMETHOPRIM [Concomitant]
     Active Substance: SULFAMETHOXAZOLE\TRIMETHOPRIM
     Indication: PNEUMOCYSTIS JIROVECII PNEUMONIA
     Dosage: 1 DF, QD
     Dates: start: 20140728, end: 20140801
  8. ONDANSETRON HYDROCHLORIDE HYDRATE [Concomitant]
     Indication: PROPHYLAXIS
     Dosage: 4 MG, QD
     Dates: start: 20140804, end: 20140804
  9. TRUVADA [Concomitant]
     Active Substance: EMTRICITABINE\TENOFOVIR DISOPROXIL FUMARATE
     Indication: HIV INFECTION
     Dosage: UNK
     Dates: start: 20140828
  10. SAMITREL [Concomitant]
     Active Substance: ATOVAQUONE
     Indication: PNEUMOCYSTIS JIROVECII PNEUMONIA
     Dosage: 1500 MG, QD
     Dates: start: 20140802, end: 20140817
  11. SULFAMETHOXAZOLE AND TRIMETHOPRIM [Concomitant]
     Active Substance: SULFAMETHOXAZOLE\TRIMETHOPRIM
     Indication: ANTIVIRAL PROPHYLAXIS
     Dosage: 1 DF, QD
     Dates: start: 20140917
  12. ONDANSETRON HYDROCHLORIDE HYDRATE [Concomitant]
     Dosage: 4 MG, QD
     Dates: start: 20140917, end: 20140917

REACTIONS (3)
  - Haemoptysis [Recovering/Resolving]
  - Hepatic function abnormal [Not Recovered/Not Resolved]
  - Folliculitis [Not Recovered/Not Resolved]

NARRATIVE: CASE EVENT DATE: 20140901
